FAERS Safety Report 7259168-4 (Version None)
Quarter: 2011Q1

REPORT INFORMATION
  Report Type: 
  Country: None (occurrence: None)
  Receive Date: 20110129
  Receipt Date: 20100624
  Transmission Date: 20110831
  Serious: No
  Sender: FDA-Public Use
  Company Number: US-ABBOTT-10P-163-0653451-00

PATIENT
  Sex: Male
  Weight: 113.5 kg

DRUGS (4)
  1. HUMIRA [Suspect]
     Indication: HIDRADENITIS
     Dates: start: 20100610
  2. HUMIRA [Suspect]
     Indication: CROHN'S DISEASE
  3. INSULIN PUMP [Concomitant]
     Indication: TYPE 1 DIABETES MELLITUS
     Dosage: CONTINUOUS MONITORING AS DIRECTED
     Route: 050
  4. HUMIRA [Suspect]
     Indication: PSORIATIC ARTHROPATHY
     Route: 058
     Dates: start: 20080101, end: 20100610

REACTIONS (4)
  - PSORIASIS [None]
  - HIDRADENITIS [None]
  - INFECTED CYST [None]
  - DIARRHOEA [None]
